FAERS Safety Report 18174915 (Version 1)
Quarter: 2020Q3

REPORT INFORMATION
  Report Type: Spontaneous
  Country: IT (occurrence: IT)
  Receive Date: 20200820
  Receipt Date: 20200820
  Transmission Date: 20201103
  Serious: Yes (Hospitalization, Other)
  Sender: FDA-Public Use
  Company Number: IT-PFIZER INC-2020308342

PATIENT
  Age: 57 Year
  Sex: Female

DRUGS (10)
  1. METHOTREXATE. [Concomitant]
     Active Substance: METHOTREXATE
     Dosage: 12 MG, CYCLIC (IVAC REGIMEN, ON DAY 5)
  2. MESNA. [Concomitant]
     Active Substance: MESNA
     Indication: BURKITT^S LYMPHOMA STAGE IV
     Dosage: 360 MG/M2, CYCLIC (SEVEN DOSES, IVAC REGIMEN (A FIVE?DAY PROTOCOL))
  3. DOXORUBICIN [Concomitant]
     Active Substance: DOXORUBICIN
     Indication: BURKITT^S LYMPHOMA STAGE IV
     Dosage: UNK, CYCLIC (CODOX?M REGIMEN)
  4. VINCRISTINE SULFATE. [Suspect]
     Active Substance: VINCRISTINE SULFATE
     Indication: BURKITT^S LYMPHOMA STAGE IV
     Dosage: UNK, CYCLIC (CODOX?M REGIMEN)
  5. CYCLOPHOSPHAMIDE. [Concomitant]
     Active Substance: CYCLOPHOSPHAMIDE
     Indication: BURKITT^S LYMPHOMA STAGE IV
     Dosage: UNK, CYCLIC (CODOX?M REGIMEN)
  6. ETOPOSIDE. [Concomitant]
     Active Substance: ETOPOSIDE
     Indication: BURKITT^S LYMPHOMA STAGE IV
     Dosage: 60 MG/M2, CYCLIC (IVAC REGIMEN (A FIVE?DAY PROTOCOL))
  7. METHOTREXATE. [Concomitant]
     Active Substance: METHOTREXATE
     Indication: BURKITT^S LYMPHOMA STAGE IV
     Dosage: UNK, CYCLIC (CODOX?M REGIMEN)
  8. IFOSFAMIDE. [Concomitant]
     Active Substance: IFOSFAMIDE
     Indication: BURKITT^S LYMPHOMA STAGE IV
     Dosage: 1500 MG/M2, CYCLIC (OVER ONE HOUR, IVAC REGIMEN (A FIVE?DAY PROTOCOL))
     Route: 042
  9. CYTARABINE. [Concomitant]
     Active Substance: CYTARABINE
     Indication: BURKITT^S LYMPHOMA STAGE IV
     Dosage: UNK, CYCLIC (CODOX?M REGIMEN)
  10. CYTARABINE. [Concomitant]
     Active Substance: CYTARABINE
     Dosage: 2 MG/M2, CYCLIC (ON DAYS 1 AND 2, IVAC REGIMEN)

REACTIONS (2)
  - Paraesthesia [Unknown]
  - Neurotoxicity [Unknown]
